FAERS Safety Report 11491592 (Version 2)
Quarter: 2015Q4

REPORT INFORMATION
  Report Type: Spontaneous
  Country: US (occurrence: US)
  Receive Date: 20150910
  Receipt Date: 20151104
  Transmission Date: 20160304
  Serious: No
  Sender: FDA-Public Use
  Company Number: US-GILEAD-2015-0170544

PATIENT
  Age: 74 Year
  Sex: Male
  Weight: 75 kg

DRUGS (1)
  1. RANEXA [Suspect]
     Active Substance: RANOLAZINE
     Indication: CHEST PAIN
     Dosage: 500 MG, QD
     Route: 048
     Dates: start: 20150827, end: 20150830

REACTIONS (4)
  - Dizziness [Unknown]
  - Vision blurred [Recovering/Resolving]
  - Heart rate increased [Unknown]
  - Chest pain [Unknown]
